FAERS Safety Report 16083738 (Version 1)
Quarter: 2019Q2

REPORT INFORMATION
  Report Type: Spontaneous
  Country: US (occurrence: US)
  Receive Date: 20190315
  Receipt Date: 20190315
  Transmission Date: 20190711
  Serious: Yes (Other)
  Sender: FDA-Public Use
  Company Number: None

PATIENT
  Age: 53 Year
  Sex: Female
  Weight: 126 kg

DRUGS (12)
  1. AMBIEN [Concomitant]
     Active Substance: ZOLPIDEM TARTRATE
  2. METATOPERAL [Concomitant]
  3. ASPIRIN. [Concomitant]
     Active Substance: ASPIRIN
  4. OXYGEN. [Concomitant]
     Active Substance: OXYGEN
  5. MAGNESIUM MALATE. [Concomitant]
     Active Substance: MAGNESIUM MALATE
  6. KLONOPIN [Concomitant]
     Active Substance: CLONAZEPAM
  7. LASARTAN [Concomitant]
  8. OXYCODONE [Concomitant]
     Active Substance: OXYCODONE
  9. MAGNESIUM [Concomitant]
     Active Substance: MAGNESIUM
  10. LOSARTAN POTASSIUM 100MG [Suspect]
     Active Substance: LOSARTAN POTASSIUM
     Indication: TACHYCARDIA
     Dosage: ?          QUANTITY:90 TABLET(S);?
     Route: 048
     Dates: start: 20181226, end: 20190315
  11. FLEXERIL [Concomitant]
     Active Substance: CYCLOBENZAPRINE HYDROCHLORIDE
  12. ASPRIN [Concomitant]
     Active Substance: ASPIRIN

REACTIONS (1)
  - Recalled product administered [None]

NARRATIVE: CASE EVENT DATE: 20190315
